FAERS Safety Report 19627050 (Version 1)
Quarter: 2021Q3

REPORT INFORMATION
  Report Type: Spontaneous
  Country: FR (occurrence: FR)
  Receive Date: 20210729
  Receipt Date: 20210729
  Transmission Date: 20211014
  Serious: Yes (Hospitalization)
  Sender: FDA-Public Use
  Company Number: FR-TEVA-2021-FR-1937136

PATIENT
  Age: 26 Year
  Sex: Female

DRUGS (3)
  1. XARELTO [Suspect]
     Active Substance: RIVAROXABAN
     Indication: VENOUS THROMBOSIS LIMB
     Dosage: 20 MILLIGRAM DAILY;  THERAPY START DATE :NOT ASKED, THERAPY END DATE: NOT ASKED,1 FP
     Route: 048
  2. THERALENE [Suspect]
     Active Substance: TRIMEPRAZINE
     Indication: SCHIZOPHRENIA
     Dosage: 20 MILLIGRAM DAILY; THERAPY START DATE :NOT ASKED,THERAPY END DATE:NOT ASKED,1 FP
     Route: 048
  3. CLOZAPINE. [Suspect]
     Active Substance: CLOZAPINE
     Indication: SCHIZOPHRENIA
     Dosage: 225 MILLIGRAM DAILY; THERAPY END DATE: NOT ASKED
     Route: 048
     Dates: start: 20210324

REACTIONS (3)
  - Tachycardia [Recovered/Resolved]
  - Ejection fraction decreased [Recovered/Resolved]
  - N-terminal prohormone brain natriuretic peptide increased [Recovered/Resolved]

NARRATIVE: CASE EVENT DATE: 20210413
